FAERS Safety Report 8760145 (Version 1)
Quarter: 2012Q4

REPORT INFORMATION
  Report Type: 
  Country: US (occurrence: US)
  Receive Date: 20120829
  Receipt Date: 20120829
  Transmission Date: 20130627
  Serious: Yes (Other)
  Sender: FDA-Public Use
  Company Number: CHPA2012US018798

PATIENT
  Age: 6 Year
  Sex: Female

DRUGS (3)
  1. BENEFIBER STICK PACKS [Suspect]
     Indication: CONSTIPATION
     Dosage: 1 PACKET, PER DAY
     Route: 048
  2. MIRALAX [Concomitant]
     Dosage: 2-3 CAPFULS, DAILY
     Route: 048
  3. DULCOLAX [Concomitant]
     Indication: CONSTIPATION
     Dosage: 2 PILLS, Unk
     Route: 048

REACTIONS (3)
  - Autoimmune thyroiditis [Not Recovered/Not Resolved]
  - Off label use [Unknown]
  - Wrong technique in drug usage process [Unknown]
